FAERS Safety Report 26033656 (Version 1)
Quarter: 2025Q4

REPORT INFORMATION
  Report Type: Report from Study
  Country: EU (occurrence: EU)
  Receive Date: 20251112
  Receipt Date: 20251112
  Transmission Date: 20260118
  Serious: Yes (Other)
  Sender: ROCHE
  Company Number: EU-ROCHE-10000358746

PATIENT

DRUGS (3)
  1. BEVACIZUMAB [Suspect]
     Active Substance: BEVACIZUMAB
     Indication: Neoplasm
     Route: 042
     Dates: start: 20250203, end: 20250203
  2. CAPECITABINE [Suspect]
     Active Substance: CAPECITABINE
     Indication: Neoplasm
     Route: 048
     Dates: start: 20250203, end: 20250203
  3. IRINOTECAN [Suspect]
     Active Substance: IRINOTECAN
     Indication: Neoplasm
     Route: 042
     Dates: start: 20250203, end: 20250203

REACTIONS (1)
  - Renal impairment [Unknown]

NARRATIVE: CASE EVENT DATE: 20250203
